FAERS Safety Report 9608053 (Version 2)
Quarter: 2013Q4

REPORT INFORMATION
  Report Type: Spontaneous
  Country: US (occurrence: US)
  Receive Date: 20131009
  Receipt Date: 20131009
  Transmission Date: 20140711
  Serious: No
  Sender: FDA-Public Use
  Company Number: US-PURDUE-USA-2012-0094158

PATIENT
  Age: 64 Year
  Sex: Male

DRUGS (4)
  1. BUTRANS [Suspect]
     Indication: PAIN
     Dosage: 10 MCG, 1/WEEK
     Route: 062
     Dates: start: 201210
  2. BUTRANS [Suspect]
     Indication: COMPLEX REGIONAL PAIN SYNDROME
  3. QUINAPRIL                          /00810602/ [Concomitant]
     Indication: HYPERTENSION
     Dosage: UNK
     Route: 048
  4. NORVASC [Concomitant]
     Indication: HYPERTENSION
     Dosage: 1 TABLET, DAILY
     Route: 048

REACTIONS (3)
  - Application site discolouration [Not Recovered/Not Resolved]
  - Application site rash [Recovered/Resolved]
  - Application site pruritus [Recovered/Resolved]
